FAERS Safety Report 18149952 (Version 1)
Quarter: 2020Q3

REPORT INFORMATION
  Report Type: Other
  Country: CA (occurrence: CA)
  Receive Date: 20200814
  Receipt Date: 20200814
  Transmission Date: 20201103
  Serious: Yes (Hospitalization)
  Sender: FDA-Public Use
  Company Number: CA-ROCHE-2654952

PATIENT
  Sex: Female

DRUGS (3)
  1. ORKAMBI [Suspect]
     Active Substance: IVACAFTOR\LUMACAFTOR
     Indication: PRODUCT USED FOR UNKNOWN INDICATION
     Route: 055
     Dates: start: 20170711
  2. PULMOZYME [Suspect]
     Active Substance: DORNASE ALFA
     Indication: CYSTIC FIBROSIS
     Dosage: DOSE, FREQUENCY, AND OTHER INFORMATION NOT PROVIDED
     Route: 065
     Dates: end: 20200731
  3. COLISTIN [Suspect]
     Active Substance: COLISTIN
     Indication: PRODUCT USED FOR UNKNOWN INDICATION
     Route: 055

REACTIONS (6)
  - Aphonia [Recovered/Resolved]
  - Pneumonia pseudomonal [Unknown]
  - Drug hypersensitivity [Unknown]
  - Drug interaction [Unknown]
  - Cough [Recovered/Resolved]
  - Throat irritation [Unknown]
